FAERS Safety Report 7375798-3 (Version None)
Quarter: 2011Q1

REPORT INFORMATION
  Report Type: 
  Country: None (occurrence: None)
  Receive Date: 20110325
  Receipt Date: 20110322
  Transmission Date: 20110831
  Serious: Yes (Other)
  Sender: FDA-Public Use
  Company Number: A0858771A

PATIENT
  Sex: Female

DRUGS (1)
  1. VENTOLIN [Suspect]
     Indication: ASTHMA
     Route: 065
     Dates: start: 20100101

REACTIONS (8)
  - ASTHMA [None]
  - PARAESTHESIA [None]
  - DYSPNOEA [None]
  - JOINT SWELLING [None]
  - HEADACHE [None]
  - DRUG INEFFECTIVE [None]
  - PRODUCT QUALITY ISSUE [None]
  - ACTIVITIES OF DAILY LIVING IMPAIRED [None]
